FAERS Safety Report 21682221 (Version 1)
Quarter: 2022Q4

REPORT INFORMATION
  Report Type: Other
  Country: PH (occurrence: None)
  Receive Date: 20221205
  Receipt Date: 20221205
  Transmission Date: 20230112
  Serious: Yes (Other)
  Sender: FDA-Public Use
  Company Number: PH-ROCHE-3225064

PATIENT
  Age: 55 Year
  Sex: Female
  Weight: 62 kg

DRUGS (3)
  1. AVASTIN [Suspect]
     Active Substance: BEVACIZUMAB
     Indication: Colorectal cancer metastatic
     Dosage: AVASTIN 100MG 3 VIALS
     Route: 042
  2. AVASTIN [Suspect]
     Active Substance: BEVACIZUMAB
     Route: 042
  3. CAPECITABINE [Concomitant]
     Active Substance: CAPECITABINE
     Dosage: 7 TABLETS PER DAY FOR 14 DAYS
     Route: 048

REACTIONS (4)
  - Metastases to liver [Unknown]
  - Carcinoembryonic antigen increased [Unknown]
  - Hepatic neoplasm [Unknown]
  - Neoplasm [Unknown]
